FAERS Safety Report 16577643 (Version 1)
Quarter: 2019Q3

REPORT INFORMATION
  Report Type: Spontaneous
  Country: MX (occurrence: MX)
  Receive Date: 20190716
  Receipt Date: 20190716
  Transmission Date: 20191004
  Serious: Yes (Other)
  Sender: FDA-Public Use
  Company Number: MX-MYLANLABS-2019M1066066

PATIENT
  Age: 55 Year
  Sex: Female

DRUGS (4)
  1. DYMISTA D [Suspect]
     Active Substance: AZELASTINE HYDROCHLORIDE\FLUTICASONE PROPIONATE
     Indication: SINUSITIS
     Dosage: 2 SPRAYS EVERY 12 HOURS
     Route: 045
     Dates: start: 20190610, end: 20190611
  2. ANTIFLU-DES [Suspect]
     Active Substance: ACETAMINOPHEN\AMANTADINE\CHLORPHENIRAMINE
     Indication: PRODUCT USED FOR UNKNOWN INDICATION
     Dosage: UNK
     Route: 048
     Dates: start: 20190610, end: 20190611
  3. DAFLOXEN F [Suspect]
     Active Substance: ACETAMINOPHEN\NAPROXEN
     Indication: PRODUCT USED FOR UNKNOWN INDICATION
     Dosage: UNK
     Route: 048
     Dates: start: 20190610
  4. MACROZIT [Suspect]
     Active Substance: AZITHROMYCIN
     Indication: PRODUCT USED FOR UNKNOWN INDICATION
     Dosage: UNK
     Route: 048

REACTIONS (7)
  - Hypersensitivity [Recovered/Resolved]
  - Off label use [Unknown]
  - Intracranial pressure increased [Recovered/Resolved]
  - Hypoaesthesia oral [Recovered/Resolved]
  - Pharyngeal oedema [Recovered/Resolved]
  - Hypertensive crisis [Recovered/Resolved]
  - Nasal discomfort [Recovered/Resolved]

NARRATIVE: CASE EVENT DATE: 20190610
